FAERS Safety Report 4336977-2 (Version None)
Quarter: 2004Q2

REPORT INFORMATION
  Report Type: 
  Country: None (occurrence: None)
  Receive Date: 20040408
  Receipt Date: 20040326
  Transmission Date: 20050107
  Serious: Yes (Other)
  Sender: FDA-Public Use
  Company Number: 2004020434

PATIENT
  Age: 19 Year
  Sex: Female

DRUGS (1)
  1. BENADRYL [Suspect]
     Indication: HYPERSENSITIVITY
     Dosage: 7 KAPSEALS ONCE, ORAL
     Route: 048
     Dates: start: 20040325, end: 20040325

REACTIONS (3)
  - DIFFICULTY IN WALKING [None]
  - DIZZINESS [None]
  - TREMOR [None]
